FAERS Safety Report 4855748-1 (Version None)
Quarter: 2005Q4

REPORT INFORMATION
  Report Type: 
  Country: None (occurrence: None)
  Receive Date: 20051215
  Receipt Date: 20051215
  Transmission Date: 20060501
  Serious: Yes (Hospitalization)
  Sender: FDA-Public Use
  Company Number: None

PATIENT
  Sex: Male

DRUGS (5)
  1. THALIDOMIDE  50 MG  CELGENE [Suspect]
     Indication: MULTIPLE MYELOMA
     Dosage: 100 MG BEDTIME PO
     Route: 048
  2. LOPRESSOR [Concomitant]
  3. LIPITOR [Concomitant]
  4. TRIAMTERENE [Concomitant]
  5. PLAVIX [Concomitant]

REACTIONS (1)
  - PULMONARY EMBOLISM [None]
